FAERS Safety Report 12126479 (Version 2)
Quarter: 2016Q1

REPORT INFORMATION
  Report Type: Spontaneous
  Country: US (occurrence: US)
  Receive Date: 20160229
  Receipt Date: 20160317
  Transmission Date: 20160526
  Serious: Yes (Hospitalization, Other)
  Sender: FDA-Public Use
  Company Number: US-SMITH AND NEPHEW, INC-2016SMT00143

PATIENT
  Age: 65 Year
  Sex: Male
  Weight: 109.75 kg

DRUGS (2)
  1. UNSPECIFIED MEDICATION(S) [Concomitant]
  2. REGRANEX [Suspect]
     Active Substance: BECAPLERMIN
     Indication: DIABETIC FOOT
     Dosage: UNK UNK, 1X/DAY
     Route: 061
     Dates: start: 201601, end: 20160212

REACTIONS (6)
  - Diabetic neuropathy [Unknown]
  - Pain [Unknown]
  - Osteomyelitis [Unknown]
  - Peripheral venous disease [Unknown]
  - Obesity [Unknown]
  - Wound infection [Recovering/Resolving]

NARRATIVE: CASE EVENT DATE: 201602
